FAERS Safety Report 7421615-2 (Version None)
Quarter: 2011Q2

REPORT INFORMATION
  Report Type: 
  Country: None (occurrence: None)
  Receive Date: 20110418
  Receipt Date: 20110414
  Transmission Date: 20111010
  Serious: Yes (Death, Other)
  Sender: FDA-Public Use
  Company Number: AU-PFIZER INC-2009312179

PATIENT
  Age: 39 Year
  Sex: Male

DRUGS (2)
  1. ALCOHOL [Suspect]
  2. CHAMPIX [Suspect]
     Indication: SMOKING CESSATION THERAPY
     Dosage: UNK

REACTIONS (20)
  - PARANOIA [None]
  - NIGHTMARE [None]
  - IRRITABILITY [None]
  - MOUTH INJURY [None]
  - DEPRESSION [None]
  - HEAD INJURY [None]
  - BLOOD ALCOHOL INCREASED [None]
  - AGITATION [None]
  - ABNORMAL BEHAVIOUR [None]
  - CARDIAC FAILURE [None]
  - ABNORMAL SLEEP-RELATED EVENT [None]
  - COMPLETED SUICIDE [None]
  - GAMBLING [None]
  - SUICIDAL IDEATION [None]
  - FEELING ABNORMAL [None]
  - ALCOHOL INTOLERANCE [None]
  - MOOD SWINGS [None]
  - AGGRESSION [None]
  - GUN SHOT WOUND [None]
  - ANXIETY [None]
